FAERS Safety Report 9541339 (Version 3)
Quarter: 2013Q4

REPORT INFORMATION
  Report Type: Report from Study
  Country: US (occurrence: US)
  Receive Date: 20130923
  Receipt Date: 20131024
  Transmission Date: 20140711
  Serious: Yes (Hospitalization)
  Sender: FDA-Public Use
  Company Number: US-MERCK-1309USA007789

PATIENT
  Age: 61 Year
  Sex: Male
  Weight: 85.26 kg

DRUGS (10)
  1. ZOLINZA [Suspect]
     Indication: T-CELL LYMPHOMA
     Dosage: 400 MG, QD
     Route: 048
     Dates: start: 20130506, end: 201308
  2. CLONIDINE [Concomitant]
     Indication: HYPERTENSION
     Dosage: UNK
     Dates: start: 2000
  3. OMEGA-3 MARINE TRIGLYCERIDES [Concomitant]
     Indication: ROUTINE HEALTH MAINTENANCE
     Dosage: UNK
     Dates: start: 2009
  4. HYDROXYZINE [Concomitant]
     Indication: PRURITUS
     Dosage: UNK
     Dates: start: 201301
  5. LOSARTAN POTASSIUM AND HYDROCHLOROTHIAZIDE TABLETS [Concomitant]
     Dosage: UNK
     Dates: start: 20130608
  6. METOPROLOL [Concomitant]
     Indication: HYPERTENSION
     Dosage: UNK
     Dates: start: 201207
  7. SYNTHROID [Concomitant]
     Indication: HYPOTHYROIDISM
     Dosage: UNK
     Dates: start: 2009
  8. TRIAMCINOLONE [Concomitant]
     Indication: MYCOSIS FUNGOIDES
     Dosage: UNK
     Dates: start: 2011
  9. TRIBENZOR [Concomitant]
     Indication: HYPERTENSION
     Dosage: UNK
     Dates: start: 201207
  10. NORVASC [Concomitant]
     Route: 048

REACTIONS (2)
  - Cellulitis [Recovered/Resolved]
  - Treatment noncompliance [Unknown]
